FAERS Safety Report 6359879-9 (Version None)
Quarter: 2009Q3

REPORT INFORMATION
  Report Type: 
  Country: None (occurrence: None)
  Receive Date: 20090917
  Receipt Date: 20090909
  Transmission Date: 20100115
  Serious: Yes (Other)
  Sender: FDA-Public Use
  Company Number: IE-AVENTIS-200920308GDDC

PATIENT
  Age: 41 Year
  Sex: Female

DRUGS (5)
  1. FLAGYL [Suspect]
     Dosage: DOSE: UNK
  2. VANCOMYCIN [Suspect]
     Dosage: DOSE: UNK
  3. CIPROFLAXACIN [Suspect]
     Dosage: DOSE: UNK
  4. FLUCLOXACILLIN [Suspect]
     Dosage: DOSE: UNK
  5. DRUG USED IN DIABETES [Concomitant]

REACTIONS (1)
  - STEVENS-JOHNSON SYNDROME [None]
